FAERS Safety Report 10397610 (Version 1)
Quarter: 2014Q3

REPORT INFORMATION
  Report Type: Spontaneous
  Country: BR (occurrence: BR)
  Receive Date: 20140821
  Receipt Date: 20140821
  Transmission Date: 20150326
  Serious: Yes (Life-Threatening)
  Sender: FDA-Public Use
  Company Number: BR-JNJFOC-20140812779

PATIENT
  Age: 16 Day
  Sex: Female

DRUGS (2)
  1. DAKTARIN [Suspect]
     Active Substance: MICONAZOLE NITRATE
     Route: 048
  2. DAKTARIN [Suspect]
     Active Substance: MICONAZOLE NITRATE
     Indication: ORAL CANDIDIASIS
     Route: 048
     Dates: start: 201408, end: 201408

REACTIONS (3)
  - Drug prescribing error [Unknown]
  - Off label use [Unknown]
  - Asphyxia [Unknown]

NARRATIVE: CASE EVENT DATE: 201408
